FAERS Safety Report 23002526 (Version 7)
Quarter: 2024Q4

REPORT INFORMATION
  Report Type: Spontaneous
  Country: US (occurrence: US)
  Receive Date: 20230928
  Receipt Date: 20241028
  Transmission Date: 20250114
  Serious: Yes (Hospitalization, Other)
  Sender: PFIZER
  Company Number: US-PFIZER INC-PV202300162051

PATIENT
  Age: 81 Year
  Sex: Female
  Weight: 74.84 kg

DRUGS (9)
  1. IBRANCE [Suspect]
     Active Substance: PALBOCICLIB
     Indication: Breast cancer metastatic
     Dosage: 100 MG, CYCLIC (DAILY ON DAYS 1-21 OF EACH 28-DAY CYCLE).TAKE WHOLE WITH WATER, WITH OR WITHOUT FOOD
     Route: 048
  2. IBRANCE [Suspect]
     Active Substance: PALBOCICLIB
     Dosage: 75 MG (21 TABLET)
     Route: 048
  3. IBRANCE [Suspect]
     Active Substance: PALBOCICLIB
     Dosage: 75 MG, CYCLIC (DAILY ON DAYS 1-21 OF EACH 28-DAY CYCLE)
     Route: 048
  4. ATENOLOL [Concomitant]
     Active Substance: ATENOLOL
     Indication: Blood pressure abnormal
     Dosage: 25 MG
  5. ANASTROZOLE [Concomitant]
     Active Substance: ANASTROZOLE
     Dosage: ON IT EVERYDAY WHEN TAKE IBRANCE IN 1 WEEK OFF
  6. JARDIANCE [Concomitant]
     Active Substance: EMPAGLIFLOZIN
     Dosage: UNK
  7. LOMOTIL [Concomitant]
     Active Substance: ATROPINE SULFATE\DIPHENOXYLATE HYDROCHLORIDE
     Indication: Diarrhoea
     Dosage: 2.5 MG, AS NEEDED (4 TIMES PER DAY)
     Route: 048
  8. ZOLOFT [Concomitant]
     Active Substance: SERTRALINE HYDROCHLORIDE
     Dosage: 75 MG, DAILY (1 TABLET ORALLY DAILY, IN ADDITION TO 50 MG DOSE)
     Route: 048
  9. SERTRALINE [Concomitant]
     Active Substance: SERTRALINE HYDROCHLORIDE
     Dosage: 1.5 TABLET ORALLY DAILY, TOTAL DOSE 75MG DAILY
     Route: 048

REACTIONS (5)
  - White blood cell count abnormal [Unknown]
  - Febrile neutropenia [Unknown]
  - Diarrhoea [Unknown]
  - Poor quality sleep [Unknown]
  - Hiatus hernia [Unknown]
